FAERS Safety Report 16682337 (Version 1)
Quarter: 2019Q3

REPORT INFORMATION
  Report Type: Spontaneous
  Country: CA (occurrence: CA)
  Receive Date: 20190808
  Receipt Date: 20190808
  Transmission Date: 20191004
  Serious: Yes (Other)
  Sender: FDA-Public Use
  Company Number: CA-PFIZER INC-2018460596

PATIENT
  Age: 73 Year
  Sex: Female

DRUGS (4)
  1. CANNABIS SATIVA OIL [Concomitant]
     Active Substance: CANNABIS SATIVA SUBSP. INDICA TOP
     Indication: PAIN
     Dosage: UNK, 1X/DAY
  2. XELJANZ [Suspect]
     Active Substance: TOFACITINIB CITRATE
     Indication: RHEUMATOID ARTHRITIS
     Dosage: 5 MG, 2X/DAY
     Route: 048
     Dates: start: 20181103, end: 20190128
  3. PREGABALIN. [Concomitant]
     Active Substance: PREGABALIN
     Dosage: UNK, 1X/DAY(HS)
     Dates: end: 2018
  4. PREDNISONE. [Concomitant]
     Active Substance: PREDNISONE
     Indication: RHEUMATOID ARTHRITIS
     Dosage: 2 DF, DAILY
     Dates: end: 2019

REACTIONS (15)
  - Muscle rupture [Unknown]
  - Gait disturbance [Unknown]
  - Swelling face [Not Recovered/Not Resolved]
  - Scleroderma [Unknown]
  - Pain [Unknown]
  - Agitation [Unknown]
  - Skin disorder [Unknown]
  - Alopecia [Unknown]
  - Headache [Unknown]
  - Arthralgia [Recovered/Resolved]
  - Carpal tunnel syndrome [Unknown]
  - Drug ineffective [Unknown]
  - Pruritus [Unknown]
  - Rash [Unknown]
  - Dyspepsia [Not Recovered/Not Resolved]

NARRATIVE: CASE EVENT DATE: 20181103
